FAERS Safety Report 23932368 (Version 1)
Quarter: 2024Q2

REPORT INFORMATION
  Report Type: Spontaneous
  Country: US (occurrence: US)
  Receive Date: 20240603
  Receipt Date: 20240603
  Transmission Date: 20240716
  Serious: Yes (Other)
  Sender: FDA-Public Use
  Company Number: US-PFIZER INC-202400181721

PATIENT
  Age: 87 Year
  Sex: Male

DRUGS (19)
  1. INLYTA [Suspect]
     Active Substance: AXITINIB
     Indication: Renal cell carcinoma
     Dosage: 3 MG, 2X/DAY
     Route: 048
     Dates: start: 20240413
  2. INLYTA [Suspect]
     Active Substance: AXITINIB
     Dosage: 2 MG, 2X/DAY
     Route: 048
     Dates: start: 20240524
  3. KEYTRUDA [Concomitant]
     Active Substance: PEMBROLIZUMAB
  4. LISINOPRIL [Concomitant]
     Active Substance: LISINOPRIL
  5. NYSTATIN [Concomitant]
     Active Substance: NYSTATIN
     Dosage: POWDER
  6. METFORMIN [Concomitant]
     Active Substance: METFORMIN HYDROCHLORIDE
  7. DIETARY SUPPLEMENT [Concomitant]
     Active Substance: DIETARY SUPPLEMENT
  8. PROTEIN [Concomitant]
     Active Substance: PROTEIN
     Dosage: POWDER
  9. LOPERAMIDE HYDROCHLORIDE [Concomitant]
     Active Substance: LOPERAMIDE HYDROCHLORIDE
  10. LIDOCAINE\PRILOCAINE [Concomitant]
     Active Substance: LIDOCAINE\PRILOCAINE
  11. IMODIUM [Concomitant]
     Active Substance: LOPERAMIDE HYDROCHLORIDE
  12. ZINC [Concomitant]
     Active Substance: PYRITHIONE ZINC\ZINC\ZINC CHLORIDE
  13. ONDANSETRON [Concomitant]
     Active Substance: ONDANSETRON
  14. VITAMIN C [Concomitant]
     Active Substance: ASCORBIC ACID
  15. VITAMIN D3 [Concomitant]
     Active Substance: CHOLECALCIFEROL
  16. GLIMEPIRIDE [Concomitant]
     Active Substance: GLIMEPIRIDE
  17. COMPAZINE [Concomitant]
     Active Substance: PROCHLORPERAZINE MALEATE
  18. COLACE [Concomitant]
     Active Substance: DOCUSATE SODIUM
  19. FERROUS GLUCONATE [Concomitant]
     Active Substance: FERROUS GLUCONATE

REACTIONS (9)
  - Atrial flutter [Unknown]
  - Diarrhoea [Recovering/Resolving]
  - Blood glucose increased [Unknown]
  - Anal pruritus [Recovering/Resolving]
  - Rash [Recovering/Resolving]
  - Hypertension [Unknown]
  - Hypotension [Unknown]
  - Muscle atrophy [Not Recovered/Not Resolved]
  - Weight decreased [Not Recovered/Not Resolved]

NARRATIVE: CASE EVENT DATE: 20240516
